FAERS Safety Report 6584386-8 (Version None)
Quarter: 2010Q1

REPORT INFORMATION
  Report Type: 
  Country: None (occurrence: None)
  Receive Date: 20100216
  Receipt Date: 20100122
  Transmission Date: 20100710
  Serious: No
  Sender: FDA-Public Use
  Company Number: US-ABBOTT-10P-163-0622552-00

PATIENT

DRUGS (6)
  1. SIMCOR [Suspect]
     Indication: BLOOD CHOLESTEROL INCREASED
     Dosage: 500/20MG
     Dates: start: 20100112
  2. MOTRIN [Concomitant]
     Indication: SPINAL COLUMN STENOSIS
  3. PLAVIX [Concomitant]
     Indication: STENT PLACEMENT
     Dates: start: 20091101
  4. ATENOLOL [Concomitant]
     Indication: HYPERTENSION
  5. LOVAZA [Concomitant]
     Indication: BLOOD CHOLESTEROL INCREASED
     Dosage: TWO DROPPERS IN AM AND ONE IN PM
     Dates: start: 20070101
  6. ASPIRIN [Concomitant]
     Indication: PROPHYLAXIS
     Dates: start: 20100112

REACTIONS (2)
  - BACK PAIN [None]
  - MYALGIA [None]
